FAERS Safety Report 5958362-X (Version None)
Quarter: 2008Q4

REPORT INFORMATION
  Report Type: 
  Country: None (occurrence: None)
  Receive Date: 20081117
  Receipt Date: 20081103
  Transmission Date: 20090506
  Serious: Yes (Other)
  Sender: FDA-Public Use
  Company Number: TPA2008A01995

PATIENT
  Age: 3 Decade
  Sex: Male

DRUGS (1)
  1. ROZEREM [Suspect]
     Indication: INSOMNIA
     Dosage: 8 MG, QHS, PER ORAL
     Route: 048

REACTIONS (4)
  - DISORIENTATION [None]
  - NIGHTMARE [None]
  - ROAD TRAFFIC ACCIDENT [None]
  - SOMNOLENCE [None]
